FAERS Safety Report 6029653-1 (Version None)
Quarter: 2009Q1

REPORT INFORMATION
  Report Type: 
  Country: None (occurrence: None)
  Receive Date: 20090107
  Receipt Date: 20081230
  Transmission Date: 20090719
  Serious: Yes (Hospitalization)
  Sender: FDA-Public Use
  Company Number: ZA-JNJFOC-20081206745

PATIENT
  Sex: Female

DRUGS (2)
  1. REVELLEX [Suspect]
     Route: 042
  2. REVELLEX [Suspect]
     Indication: RHEUMATOID ARTHRITIS
     Dosage: HAD 3 PREVIOUS INFUSIONS AND WAS DUE ON 29-DEC-2008. DID NOT RECEIVE THAT DOSE
     Route: 042

REACTIONS (1)
  - HERPES ZOSTER [None]
